FAERS Safety Report 14081645 (Version 1)
Quarter: 2017Q4

REPORT INFORMATION
  Report Type: Spontaneous
  Country: US (occurrence: US)
  Receive Date: 20171013
  Receipt Date: 20171013
  Transmission Date: 20180321
  Serious: Yes (Hospitalization, Other)
  Sender: FDA-Public Use
  Company Number: US-APOTEX-2017AP019697

PATIENT
  Age: 13 Year
  Sex: Male

DRUGS (2)
  1. QUETIAPINE FUMARATE. [Suspect]
     Active Substance: QUETIAPINE FUMARATE
     Indication: AFFECTIVE DISORDER
     Dosage: 500 MG, QD
     Route: 048
  2. VALPROIC ACID ORAL SOLUTION USP [Suspect]
     Active Substance: VALPROIC ACID
     Indication: AFFECTIVE DISORDER
     Dosage: 500 MG, Q.H.S.
     Route: 048

REACTIONS (5)
  - Myoclonus [Recovered/Resolved]
  - Akathisia [Recovered/Resolved]
  - Dyskinesia [Recovered/Resolved]
  - Treatment noncompliance [Unknown]
  - Drug abuse [Unknown]
